FAERS Safety Report 10956729 (Version 1)
Quarter: 2015Q1

REPORT INFORMATION
  Report Type: Spontaneous
  Country: US (occurrence: None)
  Receive Date: 20150325
  Receipt Date: 20150325
  Transmission Date: 20150721
  Serious: Yes (Other)
  Sender: FDA-Public Use
  Company Number: None

PATIENT
  Age: 57 Year
  Sex: Male
  Weight: 85 kg

DRUGS (21)
  1. ALBUTEROL. [Concomitant]
     Active Substance: ALBUTEROL
  2. ACETAMINOPHEN. [Concomitant]
     Active Substance: ACETAMINOPHEN
  3. ERGOCALCIFEROL. [Concomitant]
     Active Substance: ERGOCALCIFEROL
  4. GUIAFENESIN [Concomitant]
     Active Substance: GUAIFENESIN
  5. ZOSYN [Concomitant]
     Active Substance: PIPERACILLIN SODIUM\TAZOBACTAM SODIUM
  6. NEOSTIGMINE [Concomitant]
     Active Substance: NEOSTIGMINE
  7. ENOXAPARIN [Concomitant]
     Active Substance: ENOXAPARIN
  8. PANTOPRAZOLE [Concomitant]
     Active Substance: PANTOPRAZOLE SODIUM
  9. DOCUSATE [Concomitant]
     Active Substance: DOCUSATE
  10. FAMOTIDINE. [Concomitant]
     Active Substance: FAMOTIDINE
  11. HYDROCORTISONE. [Concomitant]
     Active Substance: HYDROCORTISONE
  12. PARENTERAL NUTRITION [Concomitant]
     Active Substance: AMINO ACIDS\DEXTROSE\ELECTROLYTES NOS
  13. KETOROLAC [Concomitant]
     Active Substance: KETOROLAC\KETOROLAC TROMETHAMINE
  14. DIPHENHYDRAMINE [Concomitant]
     Active Substance: DIPHENHYDRAMINE
  15. IBUPROFEN. [Concomitant]
     Active Substance: IBUPROFEN
  16. INSULIN ASPART [Concomitant]
     Active Substance: INSULIN ASPART
  17. SIMETHICONE [Concomitant]
     Active Substance: DIMETHICONE\SILICON DIOXIDE\SIMETHICONE
  18. ONDANSETRON [Concomitant]
     Active Substance: ONDANSETRON
  19. VANCOMYCIN [Concomitant]
     Active Substance: VANCOMYCIN
  20. PRIVIGEN [Suspect]
     Active Substance: HUMAN IMMUNOGLOBULIN G
     Indication: GUILLAIN-BARRE SYNDROME
     Route: 042
     Dates: start: 20150307, end: 20150311
  21. MORPHINE [Concomitant]
     Active Substance: MORPHINE

REACTIONS (1)
  - Hepatitis C antibody positive [None]

NARRATIVE: CASE EVENT DATE: 20150321
